FAERS Safety Report 12159474 (Version 1)
Quarter: 2016Q1

REPORT INFORMATION
  Report Type: Spontaneous
  Country: US (occurrence: None)
  Receive Date: 20160307
  Receipt Date: 20160307
  Transmission Date: 20160526
  Serious: No
  Sender: FDA-Public Use
  Company Number: None

PATIENT
  Age: 56 Year
  Sex: Male

DRUGS (12)
  1. BYSTOLIC [Concomitant]
     Active Substance: NEBIVOLOL HYDROCHLORIDE
  2. AZELASTINE [Concomitant]
     Active Substance: AZELASTINE
  3. IBUPROFEN. [Concomitant]
     Active Substance: IBUPROFEN
  4. ENBREL [Suspect]
     Active Substance: ETANERCEPT
     Indication: PSORIASIS
     Route: 058
     Dates: start: 20160202
  5. RANEXA [Concomitant]
     Active Substance: RANOLAZINE
  6. ESOMEPRA [Concomitant]
     Active Substance: ESOMEPRAZOLE
  7. CANASA [Concomitant]
     Active Substance: MESALAMINE
  8. FLUTICASONE [Concomitant]
     Active Substance: FLUTICASONE\FLUTICASONE PROPIONATE
  9. FUROSEMIDE. [Concomitant]
     Active Substance: FUROSEMIDE
  10. FOLIC ACID. [Concomitant]
     Active Substance: FOLIC ACID
  11. POT CHLORIDE [Concomitant]
     Active Substance: POTASSIUM CHLORIDE
  12. PROAIR HFA [Concomitant]
     Active Substance: ALBUTEROL SULFATE

REACTIONS (2)
  - Bronchitis [None]
  - Therapy cessation [None]
